FAERS Safety Report 21729147 (Version 1)
Quarter: 2022Q4

REPORT INFORMATION
  Report Type: Spontaneous
  Country: US (occurrence: US)
  Receive Date: 20221214
  Receipt Date: 20221214
  Transmission Date: 20230113
  Serious: No
  Sender: FDA-Public Use
  Company Number: US-MYLANLABS-2022M1136752

PATIENT
  Sex: Female
  Weight: 72.12 kg

DRUGS (2)
  1. SEMGLEE (INSULIN GLARGINE-YFGN) [Suspect]
     Active Substance: INSULIN GLARGINE-YFGN
     Indication: Type 2 diabetes mellitus
     Dosage: 100 INTERNATIONAL UNIT
     Route: 058
  2. HUMALOG [Concomitant]
     Active Substance: INSULIN LISPRO
     Indication: Type 2 diabetes mellitus
     Dosage: UNK UNK, TID
     Route: 065

REACTIONS (6)
  - Injury associated with device [Unknown]
  - Incorrect dose administered by device [Unknown]
  - Device issue [Unknown]
  - Needle issue [Unknown]
  - Device breakage [Unknown]
  - Device leakage [Unknown]
